FAERS Safety Report 4763979-4 (Version None)
Quarter: 2005Q3

REPORT INFORMATION
  Report Type: 
  Country: None (occurrence: None)
  Receive Date: 20050906
  Receipt Date: 20050825
  Transmission Date: 20060218
  Serious: Yes (Hospitalization)
  Sender: FDA-Public Use
  Company Number: 2005US001197

PATIENT
  Age: 73 Year
  Sex: Male

DRUGS (10)
  1. PROGRAF [Suspect]
     Indication: PROPHYLAXIS AGAINST TRANSPLANT REJECTION
     Dosage: 3.00 MG, BID, ORAL
     Route: 048
     Dates: start: 20050108
  2. MYCOPHENOLATE MOFETIL (MYCOPHENOLATE MOFETIL) [Suspect]
     Indication: PROPHYLAXIS AGAINST TRANSPLANT REJECTION
     Dosage: 250.00 MG, BID, ORAL
     Route: 048
     Dates: start: 20050108
  3. CORTICOSTEROIDS() [Suspect]
     Indication: PROPHYLAXIS AGAINST TRANSPLANT REJECTION
  4. METOPROLOL TARTRATE [Concomitant]
  5. AMIODARONE HCL [Concomitant]
  6. FOLIC ACID/MULTIVITAMIN (FOLIC ACID) [Concomitant]
  7. PRILOSEC [Concomitant]
  8. K-DUR 10 [Concomitant]
  9. PLAVIX [Concomitant]
  10. ARANESP [Concomitant]

REACTIONS (1)
  - OESOPHAGEAL STENOSIS [None]
